FAERS Safety Report 10660159 (Version 5)
Quarter: 2015Q2

REPORT INFORMATION
  Report Type: Spontaneous
  Country: US (occurrence: US)
  Receive Date: 20141217
  Receipt Date: 20150421
  Transmission Date: 20150821
  Serious: Yes (Other)
  Sender: FDA-Public Use
  Company Number: US-GLAXOSMITHKLINE-A1080309A

PATIENT
  Age: 75 Year
  Sex: Female
  Weight: 78.2 kg

DRUGS (4)
  1. INDERAL [Concomitant]
     Active Substance: PROPRANOLOL HYDROCHLORIDE
  2. VOTRIENT [Suspect]
     Active Substance: PAZOPANIB HYDROCHLORIDE
     Indication: RENAL CELL CARCINOMA
     Dosage: 400 MG, QD
     Route: 048
     Dates: end: 20150108
  3. SINEMET [Concomitant]
     Active Substance: CARBIDOPA\LEVODOPA
  4. VOTRIENT [Suspect]
     Active Substance: PAZOPANIB HYDROCHLORIDE
     Indication: RENAL CANCER
     Dosage: 400 MG, QD
     Route: 048
     Dates: start: 20140513, end: 201406

REACTIONS (5)
  - Hepatic enzyme increased [Recovered/Resolved]
  - Surgery [Unknown]
  - Blood pressure fluctuation [Not Recovered/Not Resolved]
  - Treatment failure [Unknown]
  - Adverse event [Unknown]

NARRATIVE: CASE EVENT DATE: 20140602
